FAERS Safety Report 4764857-7 (Version None)
Quarter: 2005Q3

REPORT INFORMATION
  Report Type: 
  Country: None (occurrence: None)
  Receive Date: 20050906
  Receipt Date: 20050825
  Transmission Date: 20060218
  Serious: Yes (Other)
  Sender: FDA-Public Use
  Company Number: 2005120152

PATIENT
  Sex: Male
  Weight: 81.6475 kg

DRUGS (2)
  1. DILANTIN [Suspect]
     Indication: CONVULSION
  2. VIAGRA [Suspect]
     Indication: ERECTILE DYSFUNCTION
     Dosage: 50 MG (50 MG, AS NECESSARY)
     Dates: start: 20050823

REACTIONS (5)
  - DIABETES MELLITUS [None]
  - DRUG INEFFECTIVE [None]
  - ERECTILE DYSFUNCTION [None]
  - HISTOPLASMOSIS [None]
  - SELF-MEDICATION [None]
